FAERS Safety Report 26185730 (Version 1)
Quarter: 2025Q4

REPORT INFORMATION
  Report Type: Spontaneous
  Country: US (occurrence: None)
  Receive Date: 20251219
  Receipt Date: 20251219
  Transmission Date: 20260117
  Serious: Yes (Other)
  Sender: FDA-CTU
  Company Number: None

PATIENT
  Age: 59 Year
  Sex: Female

DRUGS (1)
  1. SIMLANDI [Suspect]
     Active Substance: ADALIMUMAB-RYVK
     Dosage: 40 MG EVERY OTHER WEEK SUBCUTANEOUS
     Route: 058
     Dates: start: 20250905, end: 20251002

REACTIONS (3)
  - Systemic lupus erythematosus rash [None]
  - Skin exfoliation [None]
  - Skin exfoliation [None]

NARRATIVE: CASE EVENT DATE: 20251002
